FAERS Safety Report 14967033 (Version 1)
Quarter: 2018Q2

REPORT INFORMATION
  Report Type: Spontaneous
  Country: KR (occurrence: KR)
  Receive Date: 20180604
  Receipt Date: 20180604
  Transmission Date: 20180711
  Serious: Yes (Hospitalization)
  Sender: FDA-Public Use
  Company Number: KR-CHEPLA-C20180223_01

PATIENT
  Age: 48 Year
  Sex: Female

DRUGS (1)
  1. ATRA [Suspect]
     Active Substance: TRETINOIN
     Indication: ACUTE PROMYELOCYTIC LEUKAEMIA
     Dosage: DUE TO RETINOIC ACID SYNDROME ATRA WAS DISCONTINUED AND LATER RESUMED WITH HALVED DOSE
     Route: 065

REACTIONS (4)
  - Headache [Unknown]
  - Subarachnoid haemorrhage [Unknown]
  - Acute promyelocytic leukaemia differentiation syndrome [Recovering/Resolving]
  - Visual impairment [Unknown]
